FAERS Safety Report 4518884-5 (Version None)
Quarter: 2004Q4

REPORT INFORMATION
  Report Type: 
  Country: None (occurrence: None)
  Receive Date: 20041206
  Receipt Date: 20041125
  Transmission Date: 20050328
  Serious: Yes (Hospitalization)
  Sender: FDA-Public Use
  Company Number: 200414440FR

PATIENT
  Age: 32 Year
  Sex: Female

DRUGS (3)
  1. ARAVA [Suspect]
     Route: 048
     Dates: end: 20040808
  2. CONTRACEPTIVE PILL NOS [Concomitant]
  3. IMMUNOSUPPRESSIVE AGENTS [Concomitant]

REACTIONS (3)
  - ABORTION INDUCED [None]
  - DRUG EXPOSURE DURING PREGNANCY [None]
  - PREGNANCY [None]
